FAERS Safety Report 5909503-1 (Version None)
Quarter: 2008Q4

REPORT INFORMATION
  Report Type: 
  Country: None (occurrence: None)
  Receive Date: 20081002
  Receipt Date: 20080925
  Transmission Date: 20090506
  Serious: Yes (Hospitalization)
  Sender: FDA-Public Use
  Company Number: URSO-2008-091

PATIENT
  Age: 61 Year
  Sex: Female

DRUGS (5)
  1. URSO 250 [Suspect]
     Indication: BILIARY CIRRHOSIS PRIMARY
     Dosage: 600 MG/DAY; 900 MG/DAY
     Dates: start: 20050513, end: 20050807
  2. URSO 250 [Suspect]
     Indication: BILIARY CIRRHOSIS PRIMARY
     Dosage: 600 MG/DAY; 900 MG/DAY
     Dates: start: 20050808
  3. PROHEPARUM (LIVER HYDROLYSATE COMBINED DRUG) [Concomitant]
  4. EPAS (ETIZOLAM) [Concomitant]
  5. MUCOSTA (REBAMIPIDE) [Concomitant]

REACTIONS (5)
  - GASTRIC CANCER [None]
  - GASTRIC ULCER [None]
  - GASTRITIS [None]
  - PALPITATIONS [None]
  - POST PROCEDURAL COMPLICATION [None]
